FAERS Safety Report 6919512-1 (Version None)
Quarter: 2010Q3

REPORT INFORMATION
  Report Type: 
  Country: None (occurrence: None)
  Receive Date: 20100810
  Receipt Date: 20100810
  Transmission Date: 20110219
  Serious: Yes (Hospitalization)
  Sender: FDA-Public Use
  Company Number: None

PATIENT
  Sex: Male
  Weight: 76.8 kg

DRUGS (6)
  1. CYCLOPHOSPHAMIDE [Suspect]
     Dosage: 1340 MG
  2. DOXORUBICIN HYDROCHLORIDE [Suspect]
     Dosage: 72 MG
  3. ETOPOSIDE [Suspect]
     Dosage: 360 MG
  4. PREDNISONE [Suspect]
     Dosage: 1100 MG
  5. RITUXIMAB (MOAB C2B8 ANTI CD20 CHIMERIC) [Suspect]
     Dosage: 700 MG
  6. VINCRISTINE SULFATE [Suspect]
     Dosage: 2.8

REACTIONS (4)
  - ANAEMIA [None]
  - NEUTROPHIL COUNT DECREASED [None]
  - SYNCOPE [None]
  - WHITE BLOOD CELL COUNT DECREASED [None]
